FAERS Safety Report 4415576-8 (Version None)
Quarter: 2004Q2

REPORT INFORMATION
  Report Type: 
  Country: None (occurrence: None)
  Receive Date: 20040630
  Receipt Date: 20040131
  Transmission Date: 20050107
  Serious: Yes (Death, Other)
  Sender: FDA-Public Use
  Company Number: 2003125456

PATIENT
  Age: 15 Year
  Sex: Female

DRUGS (2)
  1. ZOLOFT [Suspect]
     Indication: MAJOR DEPRESSION
     Dosage: 50 MG DAILY ORAL
     Route: 048
     Dates: start: 20030409, end: 20031111
  2. ALL OTHER THERAPEUTIC PRODUCTS [Concomitant]

REACTIONS (3)
  - COMPLETED SUICIDE [None]
  - DEPRESSION [None]
  - SUICIDAL IDEATION [None]
